FAERS Safety Report 16992062 (Version 1)
Quarter: 2019Q4

REPORT INFORMATION
  Report Type: Report from Study
  Country: CO (occurrence: CO)
  Receive Date: 20191105
  Receipt Date: 20191105
  Transmission Date: 20200122
  Serious: Yes (Hospitalization)
  Sender: FDA-Public Use
  Company Number: CO-ROCHE-2405679

PATIENT
  Sex: Female

DRUGS (3)
  1. RITUXIMAB. [Suspect]
     Active Substance: RITUXIMAB
     Indication: RHEUMATOID ARTHRITIS
     Dosage: TWO MONTHLY
     Route: 042
  2. RITUXIMAB. [Suspect]
     Active Substance: RITUXIMAB
     Indication: SYSTEMIC LUPUS ERYTHEMATOSUS
  3. TOCILIZUMAB. [Suspect]
     Active Substance: TOCILIZUMAB
     Indication: PRODUCT USED FOR UNKNOWN INDICATION
     Route: 058

REACTIONS (11)
  - Joint tuberculosis [Unknown]
  - Joint swelling [Unknown]
  - Peripheral swelling [Unknown]
  - Haemorrhage [Unknown]
  - Arthropathy [Unknown]
  - Spinal disorder [Unknown]
  - Dyspnoea [Unknown]
  - Glaucoma [Unknown]
  - Malaise [Unknown]
  - Muscle atrophy [Unknown]
  - Arthralgia [Unknown]
